FAERS Safety Report 8069126-8 (Version None)
Quarter: 2012Q1

REPORT INFORMATION
  Report Type: 
  Country: None (occurrence: None)
  Receive Date: 20120118
  Receipt Date: 20120109
  Transmission Date: 20120608
  Serious: Yes (Death)
  Sender: FDA-Public Use
  Company Number: JPI-P-014807

PATIENT
  Age: 47 Year
  Sex: Male

DRUGS (2)
  1. XYREM [Suspect]
     Indication: PRODUCT USED FOR UNKNOWN INDICATION
     Dosage: 4.5 GM (2.25 GM, 2 IN 1 D), ORAL; 9GM (4.5 GM, 2 IN 1 D), ORAL
     Route: 048
     Dates: start: 20060724, end: 20100125
  2. XYREM [Suspect]
     Indication: PRODUCT USED FOR UNKNOWN INDICATION
     Dosage: 4.5 GM (2.25 GM, 2 IN 1 D), ORAL; 9GM (4.5 GM, 2 IN 1 D), ORAL
     Route: 048
     Dates: start: 20050223, end: 20060724

REACTIONS (2)
  - RENAL ANEURYSM [None]
  - CARDIAC ARREST [None]
